FAERS Safety Report 5234728-0 (Version None)
Quarter: 2007Q1

REPORT INFORMATION
  Report Type: 
  Country: None (occurrence: None)
  Receive Date: 20070209
  Receipt Date: 20070126
  Transmission Date: 20070707
  Serious: Yes (Hospitalization)
  Sender: FDA-Public Use
  Company Number: US-SHR-US-2007-002680

PATIENT
  Age: 64 Year
  Sex: Female

DRUGS (1)
  1. BETASERON [Suspect]
     Route: 058
     Dates: start: 20060102, end: 20070123

REACTIONS (4)
  - DRUG DOSE OMISSION [None]
  - FALL [None]
  - MOBILITY DECREASED [None]
  - VITAMIN B12 DECREASED [None]
